FAERS Safety Report 23096850 (Version 1)
Quarter: 2023Q4

REPORT INFORMATION
  Report Type: Spontaneous
  Country: US (occurrence: None)
  Receive Date: 20231019
  Receipt Date: 20231019
  Transmission Date: 20240109
  Serious: Yes (Hospitalization)
  Sender: FDA-Public Use
  Company Number: None

PATIENT
  Age: 37 Year
  Sex: Male
  Weight: 86 kg

DRUGS (1)
  1. LUMATEPERONE [Suspect]
     Active Substance: LUMATEPERONE
     Dosage: FREQUENCY : DAILY;?
     Route: 048
     Dates: end: 20221117

REACTIONS (4)
  - Dizziness [None]
  - Pyrexia [None]
  - Headache [None]
  - Tachycardia [None]

NARRATIVE: CASE EVENT DATE: 20221117
